FAERS Safety Report 5192678-2 (Version None)
Quarter: 2006Q4

REPORT INFORMATION
  Report Type: 
  Country: None (occurrence: None)
  Receive Date: 20061220
  Receipt Date: 20061211
  Transmission Date: 20070319
  Serious: Yes (Hospitalization, Other)
  Sender: FDA-Public Use
  Company Number: TPA2006A02171

PATIENT
  Age: 81 Year
  Sex: Female
  Weight: 72.5755 kg

DRUGS (3)
  1. ACTOS [Suspect]
     Indication: INSULIN-REQUIRING TYPE II DIABETES MELLITUS
     Dosage: 45 MG, 1 IN 1 D, PER ORAL ; 15 MG, 3 IN 1 D, ORAL
     Route: 048
  2. ACTONEL [Concomitant]
  3. NEURONTIN [Concomitant]

REACTIONS (5)
  - BLADDER CANCER [None]
  - BLOOD GLUCOSE DECREASED [None]
  - HAEMORRHAGE [None]
  - RENAL CELL CARCINOMA STAGE UNSPECIFIED [None]
  - URINARY BLADDER POLYP [None]
